FAERS Safety Report 21881605 (Version 1)
Quarter: 2023Q1

REPORT INFORMATION
  Report Type: Other
  Country: TR (occurrence: None)
  Receive Date: 20230119
  Receipt Date: 20230119
  Transmission Date: 20230417
  Serious: Yes (Hospitalization, Other)
  Sender: FDA-Public Use
  Company Number: TR-Bion-011046

PATIENT
  Age: 27 Year
  Sex: Male

DRUGS (1)
  1. DICLOFENAC POTASSIUM [Suspect]
     Active Substance: DICLOFENAC POTASSIUM
     Indication: Myalgia

REACTIONS (3)
  - Toxicity to various agents [Unknown]
  - Duodenal ulcer perforation [Recovered/Resolved]
  - Intentional overdose [Unknown]
